FAERS Safety Report 6814022-4 (Version None)
Quarter: 2010Q3

REPORT INFORMATION
  Report Type: 
  Country: None (occurrence: None)
  Receive Date: 20100702
  Receipt Date: 20100622
  Transmission Date: 20110219
  Serious: Yes (Other)
  Sender: FDA-Public Use
  Company Number: PHHY2010FR40662

PATIENT
  Sex: Female

DRUGS (9)
  1. EXELON [Suspect]
     Indication: DEMENTIA ALZHEIMER'S TYPE
     Dosage: 4.6 MG, QD
     Route: 062
     Dates: start: 20100219, end: 20100301
  2. ALPRAZOLAM [Concomitant]
     Dosage: 1 DF, QD (EVENING)
  3. ISOCARD [Concomitant]
     Dosage: 20 ML
  4. NITROGLYCERIN [Concomitant]
     Dosage: 15 MG, QD
  5. ZOLPIDEM [Concomitant]
     Dosage: 1 DF, QD
  6. TRANSIPEG [Concomitant]
     Dosage: 5.9 G
  7. FUROSEMIDE [Concomitant]
     Dosage: 40 MG
  8. AMLODIPINE [Concomitant]
     Dosage: 1 DF, QD
  9. KARDEGIC [Concomitant]
     Dosage: 160 MG, QD

REACTIONS (3)
  - DERMATITIS BULLOUS [None]
  - PRURITUS [None]
  - SCAR [None]
